FAERS Safety Report 18135972 (Version 1)
Quarter: 2020Q3

REPORT INFORMATION
  Report Type: Spontaneous
  Country: US (occurrence: US)
  Receive Date: 20200811
  Receipt Date: 20200811
  Transmission Date: 20201103
  Serious: Yes (Other)
  Sender: FDA-Public Use
  Company Number: US-BAYER-2020-167162

PATIENT
  Age: 19 Year
  Sex: Female

DRUGS (2)
  1. REMICADE [Concomitant]
     Active Substance: INFLIXIMAB
     Dosage: UNK
     Route: 042
  2. MIRENA [Suspect]
     Active Substance: LEVONORGESTREL
     Dosage: 20 ?G PER DAY CONSTINUOSLY
     Route: 015
     Dates: start: 2019

REACTIONS (5)
  - Genital haemorrhage [Recovered/Resolved]
  - Genital haemorrhage [Recovered/Resolved]
  - Alopecia [Not Recovered/Not Resolved]
  - Vaginal haemorrhage [None]
  - Amenorrhoea [Not Recovered/Not Resolved]

NARRATIVE: CASE EVENT DATE: 2019
